FAERS Safety Report 16245642 (Version 5)
Quarter: 2020Q3

REPORT INFORMATION
  Report Type: Report from Study
  Country: US (occurrence: US)
  Receive Date: 20190426
  Receipt Date: 20200810
  Transmission Date: 20201102
  Serious: Yes (Hospitalization, Other)
  Sender: FDA-Public Use
  Company Number: US-VIFOR (INTERNATIONAL) INC.-VIT-2019-03824

PATIENT
  Age: 68 Year
  Sex: Male
  Weight: 92.62 kg

DRUGS (4)
  1. VELTASSA [Suspect]
     Active Substance: PATIROMER
     Route: 048
     Dates: start: 20190417
  2. VELTASSA [Suspect]
     Active Substance: PATIROMER
     Route: 048
     Dates: start: 20190301
  3. VELTASSA [Suspect]
     Active Substance: PATIROMER
     Route: 048
  4. VELTASSA [Suspect]
     Active Substance: PATIROMER
     Indication: HYPERKALAEMIA
     Route: 048

REACTIONS (5)
  - Off label use [Unknown]
  - Hospitalisation [Recovered/Resolved]
  - Arthropathy [Unknown]
  - Faecaloma [Unknown]
  - Faeces hard [Unknown]

NARRATIVE: CASE EVENT DATE: 20181010
